FAERS Safety Report 19409918 (Version 6)
Quarter: 2022Q1

REPORT INFORMATION
  Report Type: Spontaneous
  Country: US (occurrence: US)
  Receive Date: 20210614
  Receipt Date: 20220228
  Transmission Date: 20220423
  Serious: No
  Sender: FDA-Public Use
  Company Number: US-THERATECHNOLOGIES INC.-2021-THE-IBA-000161

PATIENT
  Age: 64 Year
  Sex: Male

DRUGS (6)
  1. TROGARZO [Suspect]
     Active Substance: IBALIZUMAB-UIYK
     Indication: HIV infection
     Dosage: 200 MG, TWICE MONTHLY
     Route: 042
     Dates: start: 20210501, end: 20220202
  2. BIKTARVY [Concomitant]
     Active Substance: BICTEGRAVIR SODIUM\EMTRICITABINE\TENOFOVIR ALAFENAMIDE FUMARATE
     Indication: HIV infection
     Dosage: 200/50/25
     Route: 065
     Dates: start: 20201021
  3. LYRICA [Concomitant]
     Active Substance: PREGABALIN
     Indication: Diabetes mellitus
     Dosage: 100
     Route: 048
     Dates: start: 20210512
  4. TAMSULOSIN [Concomitant]
     Active Substance: TAMSULOSIN
     Indication: Benign prostatic hyperplasia
     Dosage: 0.4
     Route: 048
     Dates: start: 20210512
  5. ATORVASTATIN [Concomitant]
     Active Substance: ATORVASTATIN
     Indication: Blood cholesterol abnormal
     Dosage: 40
     Route: 048
     Dates: start: 20201021
  6. LISINOPRIL [Concomitant]
     Active Substance: LISINOPRIL
     Indication: Blood cholesterol abnormal
     Dosage: 10
     Route: 048
     Dates: start: 20191121

REACTIONS (11)
  - Viral load increased [Recovering/Resolving]
  - Stress [Unknown]
  - Abdominal pain upper [Unknown]
  - Poor quality sleep [Unknown]
  - Decreased appetite [Unknown]
  - Feeling abnormal [Unknown]
  - Laboratory test abnormal [Unknown]
  - Diarrhoea [Unknown]
  - Vomiting [Unknown]
  - Nausea [Unknown]
  - Diarrhoea [Unknown]

NARRATIVE: CASE EVENT DATE: 20210514
